FAERS Safety Report 15761759 (Version 1)
Quarter: 2018Q4

REPORT INFORMATION
  Report Type: Spontaneous
  Country: US (occurrence: US)
  Receive Date: 20181226
  Receipt Date: 20181226
  Transmission Date: 20190205
  Serious: Yes (Hospitalization, Disabling, Other)
  Sender: FDA-Public Use
  Company Number: None

PATIENT
  Age: 65 Year
  Sex: Male
  Weight: 65.25 kg

DRUGS (12)
  1. AMLODIPINE BESTLATE [Concomitant]
  2. METFORMIN [Concomitant]
     Active Substance: METFORMIN HYDROCHLORIDE
  3. LISINOPRIL. [Concomitant]
     Active Substance: LISINOPRIL
  4. TERAZON [Concomitant]
  5. HARVONI [Suspect]
     Active Substance: LEDIPASVIR\SOFOSBUVIR
     Indication: HEPATITIS C
     Dosage: ?          QUANTITY:1 TABLET(S);?
     Route: 048
     Dates: start: 20170501, end: 20170730
  6. OMEPRAZOLE. [Concomitant]
     Active Substance: OMEPRAZOLE
  7. IBUPROFEN. [Concomitant]
     Active Substance: IBUPROFEN
  8. COLACE [Concomitant]
     Active Substance: DOCUSATE SODIUM
  9. FOLIC ACID. [Concomitant]
     Active Substance: FOLIC ACID
  10. LISINOPRIL. [Concomitant]
     Active Substance: LISINOPRIL
  11. ATORVASTATIN [Concomitant]
     Active Substance: ATORVASTATIN
  12. LANTUS [Concomitant]
     Active Substance: INSULIN GLARGINE

REACTIONS (14)
  - Atrial fibrillation [None]
  - Dyspnoea [None]
  - Insomnia [None]
  - Muscle atrophy [None]
  - Decreased appetite [None]
  - Confusional state [None]
  - Musculoskeletal pain [None]
  - Gastrointestinal disorder [None]
  - Asthenia [None]
  - Pain in extremity [None]
  - Migraine [None]
  - Ulcer [None]
  - Depression [None]
  - Lung infection [None]

NARRATIVE: CASE EVENT DATE: 20170601
